FAERS Safety Report 22123138 (Version 1)
Quarter: 2023Q1

REPORT INFORMATION
  Report Type: Spontaneous
  Country: DE (occurrence: DE)
  Receive Date: 20230322
  Receipt Date: 20230322
  Transmission Date: 20230417
  Serious: Yes (Other)
  Sender: FDA-Public Use
  Company Number: DE-AUROBINDO-AUR-APL-2023-012391

PATIENT
  Sex: Male

DRUGS (1)
  1. PANTOPRAZOLE SODIUM [Suspect]
     Active Substance: PANTOPRAZOLE SODIUM
     Indication: Gastric pH decreased
     Dosage: 1 DOSAGE FORM, ONCE A DAY (IN THE MORNING)
     Route: 048

REACTIONS (3)
  - Foreign body in throat [Unknown]
  - Hyperventilation [Unknown]
  - Vomiting [Unknown]
